FAERS Safety Report 10509326 (Version 2)
Quarter: 2014Q4

REPORT INFORMATION
  Report Type: Spontaneous
  Country: US (occurrence: US)
  Receive Date: 20141009
  Receipt Date: 20141009
  Transmission Date: 20150528
  Serious: Yes (Other)
  Sender: FDA-Public Use
  Company Number: US-BAXTER-2014BAX058243

PATIENT
  Sex: Female

DRUGS (8)
  1. LACTATED RINGER^S INJECTION, USP [Suspect]
     Active Substance: CALCIUM CHLORIDE\DEXTROSE MONOHYDRATE\POTASSIUM CHLORIDE\SODIUM CHLORIDE\SODIUM LACTATE
     Indication: OFF LABEL USE
  2. CALCIUM EAP [Suspect]
     Active Substance: CALCIUM
     Indication: MULTIPLE SCLEROSIS
     Route: 042
     Dates: start: 1998, end: 201403
  3. 0.9% SODIUM CHLORIDE INJECTION [Suspect]
     Active Substance: SODIUM CHLORIDE
     Indication: MULTIPLE SCLEROSIS
     Route: 042
     Dates: start: 1998, end: 201403
  4. 0.9% SODIUM CHLORIDE INJECTION [Suspect]
     Active Substance: SODIUM CHLORIDE
     Indication: OFF LABEL USE
  5. TROPHICARD [Suspect]
     Active Substance: MAGNESIUM ASPARTATE\POTASSIUM ASPARTATE
     Indication: MULTIPLE SCLEROSIS
     Route: 042
     Dates: start: 1998, end: 201403
  6. LACTATED RINGER^S INJECTION, USP [Suspect]
     Active Substance: CALCIUM CHLORIDE\DEXTROSE MONOHYDRATE\POTASSIUM CHLORIDE\SODIUM CHLORIDE\SODIUM LACTATE
     Indication: MULTIPLE SCLEROSIS
     Route: 042
     Dates: start: 1998, end: 201403
  7. CALCIUM EAP [Suspect]
     Active Substance: CALCIUM
     Route: 048
     Dates: start: 1998, end: 201403
  8. MANDELONITRIL [Suspect]
     Active Substance: PRULAURASIN
     Indication: MULTIPLE SCLEROSIS
     Route: 042
     Dates: start: 1998, end: 201403

REACTIONS (5)
  - Product container issue [Recovering/Resolving]
  - Lung disorder [Unknown]
  - Toxicity to various agents [Unknown]
  - Off label use [None]
  - Adverse event [Recovering/Resolving]
